FAERS Safety Report 8623206 (Version 2)
Quarter: 2012Q4

REPORT INFORMATION
  Report Type: 
  Country: FI (occurrence: FI)
  Receive Date: 20120620
  Receipt Date: 20120903
  Transmission Date: 20130627
  Serious: Yes (Hospitalization)
  Sender: FDA-Public Use
  Company Number: FI-ELI_LILLY_AND_COMPANY-FI201206002690

PATIENT
  Age: 75 Year
  Sex: Female

DRUGS (3)
  1. CYMBALTA [Suspect]
     Indication: PAIN
     Dosage: 30 mg, qd
  2. CYMBALTA [Suspect]
     Dosage: 60 mg, qd
  3. OXYCODONE [Concomitant]
     Indication: PAIN
     Dosage: 50 mg, qd

REACTIONS (6)
  - Ocular hyperaemia [Recovered/Resolved]
  - Exophthalmos [Recovered/Resolved]
  - Eye pain [Recovered/Resolved]
  - Urinary retention [Recovering/Resolving]
  - Tremor [Recovered/Resolved]
  - Musculoskeletal stiffness [Recovered/Resolved]
